FAERS Safety Report 9563440 (Version 1)
Quarter: 2013Q3

REPORT INFORMATION
  Report Type: Spontaneous
  Country: IE (occurrence: None)
  Receive Date: 20130926
  Receipt Date: 20130926
  Transmission Date: 20140515
  Serious: Yes (Other)
  Sender: FDA-Public Use
  Company Number: PI-09812

PATIENT
  Sex: Female

DRUGS (2)
  1. CHLORAPREP [Suspect]
     Indication: PREOPERATIVE CARE
     Route: 061
     Dates: start: 20130801
  2. CHLORAPREP [Suspect]
     Indication: INFECTION PROPHYLAXIS
     Route: 061
     Dates: start: 20130801

REACTIONS (3)
  - Eye pain [None]
  - Corneal disorder [None]
  - Accidental exposure to product [None]
